FAERS Safety Report 11108605 (Version 2)
Quarter: 2015Q2

REPORT INFORMATION
  Report Type: Spontaneous
  Country: JP (occurrence: JP)
  Receive Date: 20150513
  Receipt Date: 20150626
  Transmission Date: 20150821
  Serious: Yes (Other)
  Sender: FDA-Public Use
  Company Number: JP-009507513-1505JPN002752

PATIENT
  Age: 60 Year
  Sex: Male

DRUGS (10)
  1. IFOSFAMIDE. [Suspect]
     Active Substance: IFOSFAMIDE
     Indication: NATURAL KILLER-CELL LEUKAEMIA
     Dosage: UNKNOWN
  2. ASPARAGINASE/ASPARAGINASE (AS DRUG) [Suspect]
     Active Substance: ASPARAGINASE
     Indication: CHEMOTHERAPY
  3. ETOPOSIDE. [Suspect]
     Active Substance: ETOPOSIDE
     Indication: CHEMOTHERAPY
  4. DEXAMETHASONE. [Suspect]
     Active Substance: DEXAMETHASONE
     Indication: NATURAL KILLER-CELL LEUKAEMIA
     Dosage: UNKNOWN
  5. IFOSFAMIDE. [Suspect]
     Active Substance: IFOSFAMIDE
     Indication: CHEMOTHERAPY
  6. ASPARAGINASE/ASPARAGINASE (AS DRUG) [Suspect]
     Active Substance: ASPARAGINASE
     Indication: NATURAL KILLER-CELL LEUKAEMIA
     Dosage: UNKNOWN
  7. METHOTREXATE [Suspect]
     Active Substance: METHOTREXATE
     Indication: NATURAL KILLER-CELL LEUKAEMIA
     Dosage: UNKNOWN
  8. ETOPOSIDE. [Suspect]
     Active Substance: ETOPOSIDE
     Indication: NATURAL KILLER-CELL LEUKAEMIA
     Dosage: UNKNOWN
  9. DEXAMETHASONE. [Suspect]
     Active Substance: DEXAMETHASONE
     Indication: CHEMOTHERAPY
  10. METHOTREXATE [Suspect]
     Active Substance: METHOTREXATE
     Indication: CHEMOTHERAPY

REACTIONS (2)
  - Toxic epidermal necrolysis [Recovered/Resolved]
  - Cerebral haemorrhage [None]
